FAERS Safety Report 8622453-5 (Version None)
Quarter: 2012Q3

REPORT INFORMATION
  Report Type: 
  Country: None (occurrence: None)
  Receive Date: 20120822
  Receipt Date: 20120822
  Transmission Date: 20120928
  Serious: No
  Sender: FDA-Public Use
  Company Number: None

PATIENT
  Sex: Female
  Weight: 63.5036 kg

DRUGS (1)
  1. ZYCLARA [Suspect]
     Indication: ACTINIC KERATOSIS
     Dosage: TOPICALLY
     Route: 061
     Dates: start: 20111202, end: 20111203

REACTIONS (4)
  - OROPHARYNGEAL PAIN [None]
  - NAUSEA [None]
  - ORAL HERPES [None]
  - LYMPHADENOPATHY [None]
